FAERS Safety Report 4722945-5 (Version None)
Quarter: 2005Q3

REPORT INFORMATION
  Report Type: 
  Country: None (occurrence: None)
  Receive Date: 20050719
  Receipt Date: 20040820
  Transmission Date: 20060218
  Serious: Yes (Hospitalization, Other)
  Sender: FDA-Public Use
  Company Number: 2004231221US

PATIENT
  Age: 75 Year
  Sex: Female

DRUGS (16)
  1. CELEBREX [Suspect]
     Indication: SKELETAL INJURY
     Dosage: 100 MG, BID
     Dates: start: 20011209, end: 20011227
  2. BETAPACE [Concomitant]
  3. ZOCOR [Concomitant]
  4. LANOXIN [Concomitant]
  5. PHENOBARB (PHENOBARBITAL SODIUM) [Concomitant]
  6. DILANTIN [Concomitant]
  7. DEMADEX [Concomitant]
  8. PEPCID [Concomitant]
  9. PAXIL [Concomitant]
  10. ALDACTONE [Concomitant]
  11. VASOTEC RPD [Concomitant]
  12. VITAMIN A [Concomitant]
  13. ASPIRIN [Concomitant]
  14. IMDUR [Concomitant]
  15. ALBUTEROL [Concomitant]
  16. DARVOCET-N (DEXTROPROPOXYPHENE NAPSILATE) [Concomitant]

REACTIONS (6)
  - BRADYCARDIA [None]
  - DECREASED APPETITE [None]
  - HYPOTHYROIDISM [None]
  - NAUSEA [None]
  - RENAL FAILURE ACUTE [None]
  - VOMITING [None]
